FAERS Safety Report 8516456-9 (Version None)
Quarter: 2012Q3

REPORT INFORMATION
  Report Type: 
  Country: None (occurrence: None)
  Receive Date: 20120718
  Receipt Date: 20120713
  Transmission Date: 20120928
  Serious: No
  Sender: FDA-Public Use
  Company Number: US-PFIZER INC-2012169647

PATIENT
  Sex: Female
  Weight: 47.166 kg

DRUGS (4)
  1. FLECTOR [Suspect]
     Indication: BACK PAIN
     Dosage: UNK
  2. LYRICA [Concomitant]
     Indication: FIBROMYALGIA
     Dosage: 50 MG, 2X/DAY
     Route: 048
  3. LYRICA [Concomitant]
     Dosage: UNK
     Route: 048
  4. FLECTOR [Suspect]
     Indication: ARTHRALGIA

REACTIONS (2)
  - THERAPEUTIC RESPONSE UNEXPECTED [None]
  - PRE-EXISTING CONDITION IMPROVED [None]
